FAERS Safety Report 17281391 (Version 2)
Quarter: 2020Q1

REPORT INFORMATION
  Report Type: Spontaneous
  Country: PL (occurrence: PL)
  Receive Date: 20200117
  Receipt Date: 20200122
  Transmission Date: 20200409
  Serious: Yes (Other)
  Sender: FDA-Public Use
  Company Number: PL-BIODELIVERY SCIENCES INTERNATIONAL-2020BDSI0026

PATIENT
  Age: 49 Year
  Sex: Male

DRUGS (16)
  1. FENTANYL. [Suspect]
     Active Substance: FENTANYL
     Indication: BREAKTHROUGH PAIN
     Dosage: 10 PACKS OF THE DRUG BETWEEN APPOINTMENTS
     Route: 045
     Dates: start: 2015
  2. METHADONE [Suspect]
     Active Substance: METHADONE HYDROCHLORIDE
     Indication: BREAKTHROUGH PAIN
  3. FENTANYL. [Suspect]
     Active Substance: FENTANYL
     Route: 045
     Dates: start: 2015
  4. FENTANYL. [Suspect]
     Active Substance: FENTANYL
     Route: 045
     Dates: start: 2018
  5. FENTANYL. [Suspect]
     Active Substance: FENTANYL
     Indication: BREAKTHROUGH PAIN
     Route: 060
     Dates: start: 2015
  6. PREGABALIN. [Suspect]
     Active Substance: PREGABALIN
     Route: 065
     Dates: start: 2018
  7. MORPHINE SULFATE. [Suspect]
     Active Substance: MORPHINE SULFATE
     Indication: BREAKTHROUGH PAIN
     Dates: start: 2018
  8. KETOPROFEN. [Suspect]
     Active Substance: KETOPROFEN
     Indication: BREAKTHROUGH PAIN
     Route: 065
     Dates: start: 2015
  9. MORPHINE SULFATE. [Suspect]
     Active Substance: MORPHINE SULFATE
     Indication: BREAKTHROUGH PAIN
     Route: 065
     Dates: start: 2015
  10. PREGABALIN. [Suspect]
     Active Substance: PREGABALIN
     Indication: BREAKTHROUGH PAIN
     Route: 065
     Dates: start: 2015
  11. FENTANYL CITRATE. [Suspect]
     Active Substance: FENTANYL CITRATE
     Indication: BREAKTHROUGH PAIN
     Dosage: 100 UG, 1 PATCH, Q72H
     Route: 062
     Dates: start: 2018
  12. FENTANYL. [Suspect]
     Active Substance: FENTANYL
     Dosage: UNK
     Route: 045
     Dates: start: 2017
  13. FENTANYL. [Suspect]
     Active Substance: FENTANYL
     Dosage: QID INTO EACH NOSTRIL
     Route: 045
     Dates: start: 2015
  14. FENTANYL. [Suspect]
     Active Substance: FENTANYL
     Dosage: EACH NOSTRIL
     Route: 045
     Dates: start: 2015
  15. OXYCODONE [Suspect]
     Active Substance: OXYCODONE
     Indication: BREAKTHROUGH PAIN
     Route: 065
     Dates: start: 2015
  16. OXYCODONE [Suspect]
     Active Substance: OXYCODONE
     Route: 065
     Dates: start: 2018

REACTIONS (2)
  - Prescription form tampering [Unknown]
  - Drug dependence [Unknown]

NARRATIVE: CASE EVENT DATE: 2015
